FAERS Safety Report 8375820-1 (Version None)
Quarter: 2012Q2

REPORT INFORMATION
  Report Type: 
  Country: None (occurrence: None)
  Receive Date: 20120522
  Receipt Date: 20120515
  Transmission Date: 20120825
  Serious: Yes (Other)
  Sender: FDA-Public Use
  Company Number: US-BAYER-200940674NA

PATIENT
  Age: 54 Year
  Sex: Female
  Weight: 95.238 kg

DRUGS (12)
  1. TRASYLOL [Suspect]
     Indication: CORONARY ARTERY BYPASS
     Dosage: 100CC PRIME/ LOAD THEN 25CC/HR
     Route: 042
     Dates: start: 20030513, end: 20030513
  2. GLUCOTROL XL [Concomitant]
  3. INSULIN [Concomitant]
     Indication: PRODUCT USED FOR UNKNOWN INDICATION
  4. ANTIHYPERTENSIVES [Concomitant]
     Indication: PRODUCT USED FOR UNKNOWN INDICATION
  5. TRASYLOL [Suspect]
     Dosage: APROTININ 3 MILLION UNITS BILLED
     Dates: start: 20040514
  6. TOPROL-XL [Concomitant]
  7. HEPARIN [Concomitant]
     Dosage: UNK
     Dates: start: 20030513
  8. VERAPAMIL [Concomitant]
     Dosage: UNK
     Dates: start: 20030513
  9. TRASYLOL [Suspect]
  10. ASPIRIN [Concomitant]
  11. NITROGLYCERIN [Concomitant]
     Dosage: UNK
     Dates: start: 20030513
  12. ZOCOR [Concomitant]

REACTIONS (12)
  - RENAL FAILURE [None]
  - RENAL IMPAIRMENT [None]
  - UNEVALUABLE EVENT [None]
  - ANXIETY [None]
  - AMNESIA [None]
  - RENAL INJURY [None]
  - PAIN [None]
  - STRESS [None]
  - ANHEDONIA [None]
  - EMOTIONAL DISTRESS [None]
  - FEAR [None]
  - INJURY [None]
